FAERS Safety Report 20922202 (Version 2)
Quarter: 2022Q3

REPORT INFORMATION
  Report Type: Report from Study
  Country: US (occurrence: US)
  Receive Date: 20220607
  Receipt Date: 20220927
  Transmission Date: 20221027
  Serious: Yes (Other)
  Sender: FDA-Public Use
  Company Number: US-ABBVIE-22K-163-4372553-00

PATIENT
  Age: 65 Year
  Sex: Female
  Weight: 72.121 kg

DRUGS (5)
  1. HUMIRA [Suspect]
     Active Substance: ADALIMUMAB
     Indication: Polyarthritis
     Dosage: CITRATE FREE
     Route: 058
     Dates: end: 2022
  2. HUMIRA [Suspect]
     Active Substance: ADALIMUMAB
     Dosage: CITRATE FREE
     Route: 058
     Dates: start: 2022
  3. HUMIRA [Suspect]
     Active Substance: ADALIMUMAB
     Dosage: CITRATE FREE
     Route: 058
     Dates: start: 20220427
  4. LEVOTHYROXINE SODIUM [Concomitant]
     Active Substance: LEVOTHYROXINE SODIUM
     Indication: Product used for unknown indication
     Route: 065
  5. OXYBUTYNIN CHLORIDE [Concomitant]
     Active Substance: OXYBUTYNIN CHLORIDE
     Indication: Product used for unknown indication
     Route: 065

REACTIONS (10)
  - Surgery [Recovered/Resolved]
  - Trigger finger [Unknown]
  - Colitis microscopic [Unknown]
  - Adverse food reaction [Unknown]
  - Dyspepsia [Unknown]
  - Anxiety [Unknown]
  - Diarrhoea [Unknown]
  - Gastric disorder [Unknown]
  - Joint range of motion decreased [Unknown]
  - Limb operation [Unknown]

NARRATIVE: CASE EVENT DATE: 20220327
